FAERS Safety Report 21446871 (Version 5)
Quarter: 2022Q4

REPORT INFORMATION
  Report Type: Report from Study
  Country: US (occurrence: US)
  Receive Date: 20221012
  Receipt Date: 20221213
  Transmission Date: 20230112
  Serious: No
  Sender: FDA-Public Use
  Company Number: US-NOVARTISTESTPH-NVSC2022US230068

PATIENT
  Sex: Female

DRUGS (2)
  1. KISQALI [Suspect]
     Active Substance: RIBOCICLIB
     Indication: Breast cancer
     Dosage: 400 MG, QD
     Route: 048
     Dates: start: 20220816
  2. KISQALI [Suspect]
     Active Substance: RIBOCICLIB
     Dosage: 600 MG, QD
     Route: 048

REACTIONS (7)
  - Back disorder [Unknown]
  - Respiratory tract congestion [Recovering/Resolving]
  - Asthma [Unknown]
  - Burning sensation [Unknown]
  - Hot flush [Unknown]
  - Rash [Unknown]
  - Product dose omission issue [Unknown]
